FAERS Safety Report 5722176-6 (Version None)
Quarter: 2008Q2

REPORT INFORMATION
  Report Type: 
  Country: None (occurrence: None)
  Receive Date: 20080429
  Receipt Date: 20070524
  Transmission Date: 20081010
  Serious: No
  Sender: FDA-Public Use
  Company Number: US-ASTRAZENECA-2007UW12833

PATIENT
  Age: 49 Year
  Sex: Male
  Weight: 167.8 kg

DRUGS (13)
  1. NEXIUM [Suspect]
     Indication: GASTROOESOPHAGEAL REFLUX DISEASE
     Route: 048
     Dates: start: 20050101
  2. NEXIUM [Suspect]
     Indication: EROSIVE OESOPHAGITIS
     Route: 048
     Dates: start: 20050101
  3. BENICAR [Concomitant]
  4. HYDROCHLOROTHIAZIDE [Concomitant]
  5. TESTIM [Concomitant]
  6. VYTORIN [Concomitant]
  7. ZETIA [Concomitant]
  8. LORATADINE [Concomitant]
  9. METFORMIN HCL [Concomitant]
  10. JANUVIA [Concomitant]
  11. ACTOS [Concomitant]
  12. VITAMIN D [Concomitant]
  13. DOSTINEX [Concomitant]

REACTIONS (11)
  - ALDOLASE INCREASED [None]
  - BLOOD CREATINE PHOSPHOKINASE INCREASED [None]
  - BLOOD TEST ABNORMAL [None]
  - DRUG TOXICITY [None]
  - HYPOAESTHESIA [None]
  - MUSCLE FATIGUE [None]
  - NEURALGIA [None]
  - PHARYNGOLARYNGEAL PAIN [None]
  - POSTNASAL DRIP [None]
  - RESORPTION BONE INCREASED [None]
  - VITAMIN D DECREASED [None]
